FAERS Safety Report 5443704-4 (Version None)
Quarter: 2007Q3

REPORT INFORMATION
  Report Type: 
  Country: None (occurrence: None)
  Receive Date: 20070905
  Receipt Date: 20070831
  Transmission Date: 20080115
  Serious: Yes (Hospitalization, Other)
  Sender: FDA-Public Use
  Company Number: DE-BRISTOL-MYERS SQUIBB COMPANY-13869805

PATIENT
  Age: 70 Year
  Sex: Female
  Weight: 76 kg

DRUGS (4)
  1. SPRYCEL [Suspect]
     Indication: CHRONIC MYELOID LEUKAEMIA
     Dosage: DRUG WAS ALSO TAKEN FROM 11-JUN TO 25-JUN
     Dates: start: 20070515, end: 20070529
  2. RYTHMOL [Concomitant]
     Indication: TACHYCARDIA
  3. RYTHMOL [Concomitant]
     Indication: ATRIAL FIBRILLATION
  4. XIPAMIDE [Concomitant]
     Indication: OEDEMA

REACTIONS (6)
  - CANDIDIASIS [None]
  - CEREBRAL INFARCTION [None]
  - GENERAL PHYSICAL HEALTH DETERIORATION [None]
  - PERICARDIAL EFFUSION [None]
  - PNEUMONIA [None]
  - STENOTROPHOMONAS INFECTION [None]
